FAERS Safety Report 9816401 (Version 1)
Quarter: 2014Q1

REPORT INFORMATION
  Report Type: Spontaneous
  Country: US (occurrence: US)
  Receive Date: 20140114
  Receipt Date: 20140114
  Transmission Date: 20141002
  Serious: Yes (Death, Other)
  Sender: FDA-Public Use
  Company Number: US-PFIZER INC-2014007202

PATIENT
  Age: 27 Year
  Sex: Male

DRUGS (4)
  1. GABAPENTIN [Suspect]
  2. AMPHETAMINE [Suspect]
     Dosage: AMPHETAMINE (HALLUCINOGENIC)
  3. COCAINE [Suspect]
  4. MARIJUANA [Suspect]

REACTIONS (12)
  - Drug abuse [Fatal]
  - Poisoning [Unknown]
  - Tachycardia [Unknown]
  - Screaming [Unknown]
  - Vomiting [Unknown]
  - Sputum discoloured [Unknown]
  - Abnormal behaviour [Unknown]
  - Cyanosis [Unknown]
  - Mydriasis [Unknown]
  - Body temperature increased [Unknown]
  - Agitation [Unknown]
  - Genital burning sensation [Unknown]
